FAERS Safety Report 23666106 (Version 1)
Quarter: 2024Q1

REPORT INFORMATION
  Report Type: Spontaneous
  Country: FR (occurrence: FR)
  Receive Date: 20240324
  Receipt Date: 20240324
  Transmission Date: 20240410
  Serious: Yes (Hospitalization)
  Sender: FDA-Public Use
  Company Number: FR-AFSSAPS-TO2024000364

PATIENT
  Age: 89 Year
  Sex: Female

DRUGS (6)
  1. ATENOLOL [Suspect]
     Active Substance: ATENOLOL
     Indication: Product used for unknown indication
     Dosage: 25 MILLIGRAM, ONCE A DAY, 50 MG: 1/2-0
     Route: 048
     Dates: end: 20231116
  2. RISPERDAL [Suspect]
     Active Substance: RISPERIDONE
     Indication: Dementia Alzheimer^s type
     Dosage: 0.5 MILLIGRAM, ONCE A DAY,0-0-1 TAB/D
     Route: 048
     Dates: end: 20231116
  3. OXAZEPAM [Suspect]
     Active Substance: OXAZEPAM
     Indication: Dementia Alzheimer^s type
     Dosage: 5 MILLIGRAM, ONCE A DAY,0-0-0.5 CP/D
     Route: 048
     Dates: end: 20231116
  4. FUROSEMIDE [Concomitant]
     Active Substance: FUROSEMIDE
     Indication: Product used for unknown indication
     Dosage: UNK
     Route: 065
  5. ASPIRIN [Concomitant]
     Active Substance: ASPIRIN
     Indication: Product used for unknown indication
     Dosage: UNK
     Route: 065
  6. ESOMEPRAZOLE [Concomitant]
     Active Substance: ESOMEPRAZOLE
     Indication: Product used for unknown indication
     Dosage: UNK
     Route: 065

REACTIONS (2)
  - Sedation [Recovering/Resolving]
  - Fall [Recovered/Resolved]

NARRATIVE: CASE EVENT DATE: 20231107
